FAERS Safety Report 10038431 (Version 3)
Quarter: 2014Q2

REPORT INFORMATION
  Report Type: Report from Study
  Country: BR (occurrence: BR)
  Receive Date: 20140326
  Receipt Date: 20140414
  Transmission Date: 20141212
  Serious: Yes (Hospitalization, Other)
  Sender: FDA-Public Use
  Company Number: PHHY2014BR016790

PATIENT
  Sex: Female
  Weight: 65 kg

DRUGS (13)
  1. SANDOSTATIN LAR [Suspect]
     Indication: ACROMEGALY
     Dosage: 30 MG, EVERY 28 DAYS
     Route: 065
     Dates: start: 201101
  2. AMLODIPINE [Suspect]
     Indication: BLOOD PRESSURE ABNORMAL
     Dosage: UNK UKN, 2 DAYS IN THE MORNING / 2 DAYS AT NIGHT
     Dates: start: 2011
  3. LOSARTAN [Suspect]
     Indication: BLOOD PRESSURE ABNORMAL
     Dosage: 2 DF, (50 MG) DAILY
     Dates: start: 2010
  4. CABERGOLINE [Concomitant]
     Indication: BLOOD PROLACTIN ABNORMAL
     Dosage: 2 DF (0.5 MG), PER WEEK
     Dates: start: 201401
  5. CABERGOLINE [Concomitant]
     Dosage: UNKNOWN DOSE OF 30 MG TABLET
  6. PREDNISONE [Concomitant]
     Indication: ASTHENIA
     Dosage: 1 DF, (5 MG) DAILY
     Dates: start: 2011
  7. PREDNISONE [Concomitant]
     Indication: FATIGUE
  8. PREDNISONE [Concomitant]
     Indication: BLOOD CORTISOL DECREASED
  9. PREDNISONE [Concomitant]
     Indication: STRESS
  10. PURAN T4 [Concomitant]
     Indication: ASTHENIA
     Dosage: 50 MG
  11. PURAN T4 [Concomitant]
     Indication: FATIGUE
     Dosage: 75 MG
  12. PURAN T4 [Concomitant]
     Indication: BLOOD CORTISOL DECREASED
     Dosage: 100 MG
     Dates: start: 201212
  13. PURAN T4 [Concomitant]
     Indication: HYPOTHYROIDISM

REACTIONS (14)
  - Convulsion [Recovering/Resolving]
  - Blood pressure increased [Recovering/Resolving]
  - Malaise [Recovering/Resolving]
  - Adrenal disorder [Recovered/Resolved]
  - Hypothalamo-pituitary disorder [Recovering/Resolving]
  - Blood cortisol decreased [Recovered/Resolved]
  - Fatigue [Recovered/Resolved]
  - Asthenia [Recovered/Resolved]
  - Hypothyroidism [Recovered/Resolved]
  - Weight increased [Recovered/Resolved]
  - Prehypertension [Unknown]
  - Memory impairment [Not Recovered/Not Resolved]
  - Insulin-like growth factor decreased [Unknown]
  - Therapeutic response decreased [Unknown]
